FAERS Safety Report 4549880-X (Version None)
Quarter: 2004Q4

REPORT INFORMATION
  Report Type: 
  Country: None (occurrence: None)
  Receive Date: 20041227
  Receipt Date: 20041005
  Transmission Date: 20050328
  Serious: No
  Sender: FDA-Public Use
  Company Number: 04P-163-0276262-00

PATIENT
  Age: 71 Year
  Sex: Female
  Weight: 109 kg

DRUGS (6)
  1. HUMIRA [Suspect]
     Indication: RHEUMATOID ARTHRITIS
     Dosage: 40 MG, 1 IN 2 WK, INJECTION
     Dates: start: 20040801
  2. METHOTREXATE [Concomitant]
  3. PREDNISONE [Concomitant]
  4. DYAZIDE [Concomitant]
  5. ACETYLSALICYLIC ACID SRT [Concomitant]
  6. OXYCOCET [Concomitant]

REACTIONS (1)
  - DRUG EFFECT DECREASED [None]
